FAERS Safety Report 23258854 (Version 1)
Quarter: 2023Q4

REPORT INFORMATION
  Report Type: Spontaneous
  Country: US (occurrence: None)
  Receive Date: 20231202
  Receipt Date: 20231202
  Transmission Date: 20240109
  Serious: Yes (Hospitalization)
  Sender: FDA-Public Use
  Company Number: None

PATIENT
  Age: 78 Year
  Sex: Male
  Weight: 88 kg

DRUGS (1)
  1. LISINOPRIL [Suspect]
     Active Substance: LISINOPRIL
     Dosage: OTHER FREQUENCY : HS;?
     Route: 048
     Dates: start: 20230925, end: 20230927

REACTIONS (1)
  - Angioedema [None]

NARRATIVE: CASE EVENT DATE: 20230927
